FAERS Safety Report 23333245 (Version 2)
Quarter: 2023Q4

REPORT INFORMATION
  Report Type: Spontaneous
  Country: BE (occurrence: BE)
  Receive Date: 20231222
  Receipt Date: 20231229
  Transmission Date: 20240110
  Serious: Yes (Death, Hospitalization, Other)
  Sender: FDA-Public Use
  Company Number: BE-GLAXOSMITHKLINE-BE2023GSK113843

PATIENT
  Age: 87 Year
  Sex: Female

DRUGS (3)
  1. FLUCLOXACILLIN [Suspect]
     Active Substance: FLUCLOXACILLIN
     Indication: Staphylococcal infection
     Dosage: 2 G SIX TIMES A DAY
     Route: 065
  2. ACETAMINOPHEN [Suspect]
     Active Substance: ACETAMINOPHEN
     Indication: Back pain
     Dosage: 1 G, TID
     Route: 065
  3. CIPROFLOXACIN [Concomitant]
     Active Substance: CIPROFLOXACIN
     Indication: Urinary tract infection
     Dosage: 500 MG, BID
     Route: 048

REACTIONS (7)
  - Metabolic acidosis [Fatal]
  - Acute kidney injury [Unknown]
  - General physical health deterioration [Not Recovered/Not Resolved]
  - Apathy [Unknown]
  - Somnolence [Unknown]
  - Confusional state [Unknown]
  - Drug interaction [Unknown]
